FAERS Safety Report 10735480 (Version 3)
Quarter: 2015Q1

REPORT INFORMATION
  Report Type: Spontaneous
  Country: US (occurrence: US)
  Receive Date: 20150126
  Receipt Date: 20150322
  Transmission Date: 20150721
  Serious: No
  Sender: FDA-Public Use
  Company Number: US-009507513-1501USA002067

PATIENT
  Age: 62 Year
  Sex: Female
  Weight: 93.42 kg

DRUGS (3)
  1. SPIRIVA [Concomitant]
     Active Substance: TIOTROPIUM BROMIDE MONOHYDRATE
  2. DULERA [Suspect]
     Active Substance: FORMOTEROL FUMARATE DIHYDRATE\MOMETASONE FUROATE
     Dosage: 2 PUFFS (STRENGTH: 200/5 MICROGRAM) TWICE A DAY
     Route: 055
  3. DULERA [Suspect]
     Active Substance: FORMOTEROL FUMARATE DIHYDRATE\MOMETASONE FUROATE
     Indication: CHRONIC OBSTRUCTIVE PULMONARY DISEASE
     Dosage: 2 PUFFS (STRENGTH: 200/5 MICROGRAM) TWICE A DAY
     Route: 055
     Dates: start: 201409, end: 201409

REACTIONS (4)
  - Tension headache [Not Recovered/Not Resolved]
  - Drug ineffective [Unknown]
  - Feeling jittery [Recovered/Resolved]
  - Tremor [Not Recovered/Not Resolved]

NARRATIVE: CASE EVENT DATE: 201409
